FAERS Safety Report 24863986 (Version 1)
Quarter: 2025Q1

REPORT INFORMATION
  Report Type: Spontaneous
  Country: IT (occurrence: IT)
  Receive Date: 20250120
  Receipt Date: 20250120
  Transmission Date: 20250409
  Serious: Yes (Other)
  Sender: TEVA
  Company Number: IT-EMA-DD-20210709-shaik_i-180346

PATIENT
  Age: 35 Year
  Sex: Male

DRUGS (4)
  1. LEVOFLOXACIN [Interacting]
     Active Substance: LEVOFLOXACIN
     Indication: Epididymitis
     Route: 065
  2. IBUPROFEN [Interacting]
     Active Substance: IBUPROFEN
     Indication: Epididymitis
     Route: 065
  3. CIPROFLOXACIN [Interacting]
     Active Substance: CIPROFLOXACIN
     Indication: Epididymitis
     Route: 065
  4. CARIPRAZINE [Interacting]
     Active Substance: CARIPRAZINE
     Indication: Depression
     Dosage: DOSAGE TEXT: UNIT DOSE: 3 MG
     Route: 048

REACTIONS (4)
  - Epididymitis [Unknown]
  - Off label use [Unknown]
  - Drug ineffective [Unknown]
  - Drug interaction [Unknown]
